FAERS Safety Report 7307769-7 (Version None)
Quarter: 2011Q1

REPORT INFORMATION
  Report Type: 
  Country: None (occurrence: None)
  Receive Date: 20110223
  Receipt Date: 20101213
  Transmission Date: 20110831
  Serious: No
  Sender: FDA-Public Use
  Company Number: US-BAYER-2011-007036

PATIENT
  Sex: Female
  Weight: 108 kg

DRUGS (5)
  1. ALEVE (CAPLET) [Suspect]
     Indication: ARTHRITIS
  2. MULTI-VITAMIN [Concomitant]
  3. METHIMAZOLE [Concomitant]
  4. ALEVE (CAPLET) [Suspect]
     Indication: MYALGIA
  5. UNCODEABLE ^UNCLASSIFIABLE^ [Concomitant]

REACTIONS (2)
  - MYALGIA [None]
  - ARTHRITIS [None]
